FAERS Safety Report 8907485 (Version 1)
Quarter: 2012Q4

REPORT INFORMATION
  Report Type: 
  Country: BR (occurrence: BR)
  Receive Date: 20121114
  Receipt Date: 20121114
  Transmission Date: 20130627
  Serious: Yes (Other)
  Sender: FDA-Public Use
  Company Number: PHHY2012BR094356

PATIENT
  Sex: Female

DRUGS (8)
  1. MYFORTIC [Suspect]
     Dosage: 2 DF, daily
     Route: 048
     Dates: start: 201003
  2. FUROSEMIDE [Concomitant]
     Indication: URINARY RETENTION
     Dosage: 2 DF, daily
     Route: 048
     Dates: start: 1996
  3. B COMPLEX [Concomitant]
     Dosage: 2 DF, daily
     Route: 048
     Dates: start: 1996
  4. FERROUS SULFATE [Concomitant]
     Dosage: 2 DF, daily
     Route: 048
     Dates: start: 2000
  5. RENAGEL [Concomitant]
     Dosage: 1 DF, TID
     Route: 048
  6. FOLIC ACID [Concomitant]
     Dosage: 1 DF, QD
     Route: 048
  7. METICORTEN [Concomitant]
     Dosage: 0.5 DF, daily
     Route: 048
  8. EMAX [Concomitant]
     Dosage: 3 ml, 3 times a week
     Route: 058
     Dates: start: 201002

REACTIONS (4)
  - Renal impairment [Unknown]
  - Hypersensitivity [Unknown]
  - Rash [Unknown]
  - Urticaria [Unknown]
